FAERS Safety Report 8844984 (Version 2)
Quarter: 2012Q4

REPORT INFORMATION
  Report Type: 
  Country: US (occurrence: US)
  Receive Date: 20121017
  Receipt Date: 20121023
  Transmission Date: 20130627
  Serious: No
  Sender: FDA-Public Use
  Company Number: US-009507513-1210USA005477

PATIENT
  Age: 21 None
  Sex: Female

DRUGS (1)
  1. NEXPLANON [Suspect]
     Dosage: 1 DF, UNK
     Dates: start: 20120925, end: 201210

REACTIONS (2)
  - Staphylococcal infection [Unknown]
  - Implant site reaction [Unknown]
